FAERS Safety Report 10420819 (Version 1)
Quarter: 2014Q3

REPORT INFORMATION
  Report Type: Spontaneous
  Country: US (occurrence: None)
  Receive Date: 20140829
  Receipt Date: 20140829
  Transmission Date: 20150326
  Serious: Yes (Other)
  Sender: FDA-Public Use
  Company Number: None

PATIENT
  Sex: Female
  Weight: 87.3 kg

DRUGS (1)
  1. LIOTHYRONINE [Suspect]
     Active Substance: LIOTHYRONINE
     Indication: HYPOTHYROIDISM
     Dosage: LIOTHYRONINE DAILY PO
     Route: 048
     Dates: start: 201407

REACTIONS (2)
  - Product formulation issue [None]
  - Coeliac disease [None]
